FAERS Safety Report 10658539 (Version 1)
Quarter: 2014Q4

REPORT INFORMATION
  Report Type: Spontaneous
  Country: US (occurrence: US)
  Receive Date: 20141217
  Receipt Date: 20141217
  Transmission Date: 20150529
  Serious: No
  Sender: FDA-Public Use
  Company Number: US-ABBVIE-14P-163-1225836-00

PATIENT
  Age: 67 Year
  Sex: Female
  Weight: 49.94 kg

DRUGS (3)
  1. ESTRADIOL PATCH [Concomitant]
     Indication: HORMONE REPLACEMENT THERAPY
     Dates: start: 20140411
  2. MULTIPLE VITAMIN [Concomitant]
     Active Substance: VITAMINS
     Indication: PRODUCT USED FOR UNKNOWN INDICATION
  3. PROMETRIUM [Suspect]
     Active Substance: PROGESTERONE
     Indication: HORMONE REPLACEMENT THERAPY
     Dosage: AT BEDTIME
     Route: 048
     Dates: start: 20140411

REACTIONS (3)
  - Dyspepsia [Not Recovered/Not Resolved]
  - Off label use [Unknown]
  - Nausea [Not Recovered/Not Resolved]

NARRATIVE: CASE EVENT DATE: 20140411
